FAERS Safety Report 16526667 (Version 1)
Quarter: 2019Q3

REPORT INFORMATION
  Report Type: Spontaneous
  Country: JP (occurrence: JP)
  Receive Date: 20190704
  Receipt Date: 20190704
  Transmission Date: 20191004
  Serious: Yes (Other)
  Sender: FDA-Public Use
  Company Number: JP-ASTRAZENECA-2019SE77126

PATIENT
  Age: 76 Year
  Sex: Female

DRUGS (1)
  1. FASLODEX [Suspect]
     Active Substance: FULVESTRANT
     Indication: BREAST CANCER FEMALE
     Dosage: 500.0MG UNKNOWN
     Route: 030
     Dates: start: 20190508

REACTIONS (4)
  - Injection site induration [Recovering/Resolving]
  - Abscess bacterial [Recovering/Resolving]
  - Injection site swelling [Recovering/Resolving]
  - Injection site extravasation [Unknown]

NARRATIVE: CASE EVENT DATE: 20190517
